FAERS Safety Report 5967721-0 (Version None)
Quarter: 2008Q4

REPORT INFORMATION
  Report Type: 
  Country: None (occurrence: None)
  Receive Date: 20081126
  Receipt Date: 20081112
  Transmission Date: 20090506
  Serious: Yes (Other)
  Sender: FDA-Public Use
  Company Number: US-CELGENEUS-163-20785-08101028

PATIENT
  Sex: Female

DRUGS (8)
  1. THALOMID [Suspect]
     Indication: MULTIPLE MYELOMA
     Route: 048
     Dates: start: 20040722, end: 20070529
  2. THALOMID [Suspect]
     Route: 048
     Dates: start: 20020204, end: 20020101
  3. THALOMID [Suspect]
     Route: 048
     Dates: start: 19990201
  4. ASPIRIN [Concomitant]
     Indication: DRUG USE FOR UNKNOWN INDICATION
     Route: 065
  5. AREDIA [Concomitant]
     Indication: DRUG USE FOR UNKNOWN INDICATION
     Route: 065
  6. TUMS [Concomitant]
     Indication: DRUG USE FOR UNKNOWN INDICATION
     Route: 065
  7. PAXIL [Concomitant]
     Indication: DRUG USE FOR UNKNOWN INDICATION
     Route: 065
  8. PAXIL [Concomitant]
     Route: 065
     Dates: start: 20070724

REACTIONS (3)
  - BRADYCARDIA [None]
  - HEPATIC LESION [None]
  - VIRAL INFECTION [None]
